FAERS Safety Report 23171904 (Version 3)
Quarter: 2024Q1

REPORT INFORMATION
  Report Type: Spontaneous
  Country: US (occurrence: US)
  Receive Date: 20231110
  Receipt Date: 20240109
  Transmission Date: 20240410
  Serious: Yes (Hospitalization)
  Sender: FDA-Public Use
  Company Number: US-JNJFOC-20231074794

PATIENT
  Age: 68 Year
  Sex: Female

DRUGS (12)
  1. INVEGA [Suspect]
     Active Substance: PALIPERIDONE
     Indication: Schizophrenia
     Route: 048
  2. INGREZZA [Suspect]
     Active Substance: VALBENAZINE
     Indication: Tardive dyskinesia
     Route: 048
     Dates: start: 20230810
  3. CITALOPRAM [Concomitant]
     Active Substance: CITALOPRAM HYDROBROMIDE
  4. QUETIAPINE [Concomitant]
     Active Substance: QUETIAPINE
     Dosage: 50MG IN AM, 50 MG IN AFTERNOON AND 200 MG QHS
  5. THORAZINE [Concomitant]
     Active Substance: CHLORPROMAZINE
  6. VITAMIN B12 [Concomitant]
     Active Substance: CYANOCOBALAMIN
  7. VITAMIN D2 [Concomitant]
     Active Substance: ERGOCALCIFEROL
  8. LEVOTHYROXINE [Concomitant]
     Active Substance: LEVOTHYROXINE
  9. MAGNESIUM OXIDE [Concomitant]
     Active Substance: MAGNESIUM OXIDE
  10. MELATONIN [Concomitant]
     Active Substance: MELATONIN
  11. MIRALAX [Concomitant]
     Active Substance: POLYETHYLENE GLYCOL 3350
  12. SENOKOT [Concomitant]
     Active Substance: SENNOSIDES

REACTIONS (13)
  - Respiratory arrest [Unknown]
  - Syncope [Unknown]
  - Tardive dyskinesia [Recovered/Resolved]
  - Schizophrenia [Recovered/Resolved]
  - Parkinsonism [Recovering/Resolving]
  - Akathisia [Recovering/Resolving]
  - Pulse absent [Unknown]
  - COVID-19 [Recovered/Resolved]
  - Hospitalisation [Unknown]
  - Electrocardiogram T wave abnormal [Unknown]
  - Left atrial enlargement [Unknown]
  - Urinary tract infection [Unknown]
  - Asthenia [Unknown]

NARRATIVE: CASE EVENT DATE: 20230816
